FAERS Safety Report 5810876-9 (Version None)
Quarter: 2008Q3

REPORT INFORMATION
  Report Type: 
  Country: None (occurrence: None)
  Receive Date: 20080716
  Receipt Date: 20080607
  Transmission Date: 20090109
  Serious: Yes (Hospitalization)
  Sender: FDA-Public Use
  Company Number: PHHY2008FR13556

PATIENT
  Sex: Female

DRUGS (15)
  1. NEORAL [Suspect]
     Dosage: 125 MG/DAY
  2. CORTANCYL [Suspect]
     Dosage: 10 MG/DAY
  3. INSULATARD [Concomitant]
  4. ACTONEL [Concomitant]
  5. IRBESARTAN [Concomitant]
  6. LASIX [Concomitant]
  7. MIMPARA [Concomitant]
  8. MOPRAL [Concomitant]
     Dosage: 20 MG
  9. DEROXAT [Concomitant]
  10. DEPAKENE [Concomitant]
     Dosage: 500 MG
  11. OROCAL [Concomitant]
     Dosage: 500 MG
  12. URBANYL [Concomitant]
     Dosage: UNK
     Dates: start: 20080527
  13. CALCIPARINE [Concomitant]
     Dosage: UNK
     Dates: start: 20080602, end: 20080607
  14. HEPARIN [Concomitant]
     Dosage: UNK
     Dates: start: 20080607
  15. AUGMENTIN '125' [Concomitant]

REACTIONS (8)
  - BRAIN SCAN ABNORMAL [None]
  - CELLULITIS GANGRENOUS [None]
  - ERYTHEMA [None]
  - HYPOTENSION [None]
  - LUNG DISORDER [None]
  - OXYGEN SATURATION DECREASED [None]
  - SEPSIS [None]
  - SURGERY [None]
